FAERS Safety Report 14570931 (Version 5)
Quarter: 2020Q2

REPORT INFORMATION
  Report Type: Report from Study
  Country: US (occurrence: US)
  Receive Date: 20180226
  Receipt Date: 20200520
  Transmission Date: 20200713
  Serious: No
  Sender: FDA-Public Use
  Company Number: PHHY2015US123505

PATIENT
  Age: 44 Year
  Sex: Male

DRUGS (1)
  1. GILENYA [Suspect]
     Active Substance: FINGOLIMOD HYDROCHLORIDE
     Indication: MULTIPLE SCLEROSIS
     Dosage: UNK, QD
     Route: 048

REACTIONS (19)
  - Insomnia [Unknown]
  - Seborrhoeic keratosis [Not Recovered/Not Resolved]
  - Vision blurred [Recovered/Resolved]
  - Pseudofolliculitis [Not Recovered/Not Resolved]
  - Gait disturbance [Recovered/Resolved]
  - Diarrhoea [Unknown]
  - Dizziness postural [Unknown]
  - Hypertension [Not Recovered/Not Resolved]
  - Coordination abnormal [Recovered/Resolved]
  - Gait disturbance [Not Recovered/Not Resolved]
  - Pruritus [Unknown]
  - Melanocytic naevus [Not Recovered/Not Resolved]
  - Vision blurred [Not Recovered/Not Resolved]
  - Nausea [Unknown]
  - Fatigue [Not Recovered/Not Resolved]
  - Visual impairment [Recovered/Resolved]
  - Paraesthesia [Not Recovered/Not Resolved]
  - Hyperlipidaemia [Not Recovered/Not Resolved]
  - Hand-eye coordination impaired [Recovered/Resolved]

NARRATIVE: CASE EVENT DATE: 20150626
